FAERS Safety Report 22399776 (Version 2)
Quarter: 2023Q2

REPORT INFORMATION
  Report Type: Spontaneous
  Country: PK (occurrence: PK)
  Receive Date: 20230602
  Receipt Date: 20230613
  Transmission Date: 20230722
  Serious: No
  Sender: FDA-Public Use
  Company Number: PK-PFIZER INC-PV202300091009

PATIENT
  Age: 42 Year
  Sex: Female

DRUGS (1)
  1. IBRANCE [Suspect]
     Active Substance: PALBOCICLIB
     Indication: Breast cancer metastatic
     Dosage: 125 MG, DAILY (3 WEEKS ON THEN 1 WEEK REST)
     Route: 048

REACTIONS (2)
  - Respiratory disorder [Unknown]
  - Off label use [Unknown]
